FAERS Safety Report 11448993 (Version 2)
Quarter: 2015Q4

REPORT INFORMATION
  Report Type: Spontaneous
  Country: US (occurrence: US)
  Receive Date: 20150902
  Receipt Date: 20151214
  Transmission Date: 20160304
  Serious: Yes (Other)
  Sender: FDA-Public Use
  Company Number: US-GLAXOSMITHKLINE-US2015GSK082666

PATIENT
  Age: 4 Year
  Sex: Female
  Weight: 13.15 kg

DRUGS (7)
  1. FLONASE [Suspect]
     Active Substance: FLUTICASONE PROPIONATE
     Indication: PRODUCT USED FOR UNKNOWN INDICATION
     Dosage: UNK
     Dates: end: 201504
  2. ASTELIN [Concomitant]
     Active Substance: AZELASTINE HYDROCHLORIDE
  3. PATANASE [Concomitant]
     Active Substance: OLOPATADINE HYDROCHLORIDE
  4. FLOVENT DISKUS [Suspect]
     Active Substance: FLUTICASONE PROPIONATE
     Indication: ASTHMA
     Dosage: 220 UG, UNK
     Dates: start: 201311, end: 201504
  5. SINGULAIR [Concomitant]
     Active Substance: MONTELUKAST SODIUM
  6. ZYRTEC [Concomitant]
     Active Substance: CETIRIZINE HYDROCHLORIDE
  7. XOPENEX [Concomitant]
     Active Substance: LEVALBUTEROL HYDROCHLORIDE

REACTIONS (2)
  - Blood cortisol abnormal [Recovering/Resolving]
  - Growth retardation [Recovering/Resolving]

NARRATIVE: CASE EVENT DATE: 201408
